FAERS Safety Report 17654437 (Version 5)
Quarter: 2020Q2

REPORT INFORMATION
  Report Type: Spontaneous
  Country: DE (occurrence: DE)
  Receive Date: 20200410
  Receipt Date: 20200610
  Transmission Date: 20200713
  Serious: Yes (Life-Threatening, Hospitalization, Other)
  Sender: FDA-Public Use
  Company Number: DE-AUROBINDO-AUR-APL-2020-017224

PATIENT
  Age: 69 Year
  Sex: Male
  Weight: 77 kg

DRUGS (16)
  1. CARVEDILOL  FILM-COATED TABLETS 25 MG [Interacting]
     Active Substance: CARVEDILOL
     Indication: CARDIAC DISORDER
     Dosage: 25 MILLIGRAM, TWO TIMES A DAY (1-01)
     Route: 065
     Dates: start: 201808
  2. IVABRADINE FILM COATED TABLETS [Interacting]
     Active Substance: IVABRADINE
     Indication: CARDIAC DISORDER
     Dosage: 7.5 MILLIGRAM, ONCE A DAY
     Route: 065
     Dates: start: 201808
  3. TORASEMIDE [Interacting]
     Active Substance: TORSEMIDE
     Indication: RENAL DISORDER
     Dosage: 10 MILLIGRAM, ONCE A DAY (1-0-0)
     Route: 065
     Dates: start: 201808
  4. RAMIPRIL TABLETS 5MG [Interacting]
     Active Substance: RAMIPRIL
     Indication: HYPERTENSION
     Dosage: 5 MILLIGRAM, TWO TIMES A DAY (1-0-1)
     Route: 065
     Dates: start: 201808
  5. ABASAGLAR [Interacting]
     Active Substance: INSULIN GLARGINE
     Indication: DIABETES MELLITUS
     Dosage: 15 INTERNATIONAL UNIT, ONCE A DAY
     Route: 065
     Dates: start: 201808
  6. MILGAMMA PROTEKT [Interacting]
     Active Substance: BENFOTIAMINE
     Indication: CARDIOVASCULAR DISORDER
     Dosage: 300 MILLIGRAM, ONCE A DAY (1)
     Route: 065
     Dates: start: 201808
  7. CARVEDILOL FILM-COATED TABLETS [Interacting]
     Active Substance: CARVEDILOL
     Indication: PRODUCT USED FOR UNKNOWN INDICATION
     Dosage: 25 MILLIGRAM, TWO TIMES A DAY
     Route: 065
     Dates: start: 201808
  8. ALLOPURINOL 100 MG TABLETS [Interacting]
     Active Substance: ALLOPURINOL
     Indication: GOUT
     Dosage: 100 MILLIGRAM, ONCE A DAY
     Route: 065
     Dates: start: 201808
  9. AMLODIPINE [Suspect]
     Active Substance: AMLODIPINE BESYLATE
     Indication: HYPERTENSION
     Dosage: 5 MILLIGRAM, TWO TIMES A DAY (1-01)
     Route: 065
     Dates: start: 201808
  10. AVASTIN [Interacting]
     Active Substance: BEVACIZUMAB
     Indication: DIABETIC RETINAL OEDEMA
     Dosage: UNK, EINSPRITZEN INS RECHTE AUGE UM 13.30 UHR
     Route: 031
     Dates: start: 20200115
  11. ELIQUIS [Interacting]
     Active Substance: APIXABAN
     Indication: CEREBROVASCULAR ACCIDENT PROPHYLAXIS
  12. JANUMET [Interacting]
     Active Substance: METFORMIN HYDROCHLORIDE\SITAGLIPTIN PHOSPHATE
     Indication: DIABETES MELLITUS
     Dosage: 1 DOSAGE FORM, TWO TIMES A DAY (1-0-1)
     Route: 065
     Dates: start: 201808
  13. SIMVASTATIN FILM-COATED TABLETS 40MG [Interacting]
     Active Substance: SIMVASTATIN
     Indication: BLOOD CHOLESTEROL
     Dosage: 40 MILLIGRAM, ONCE A DAY (0-0-1)
     Route: 065
     Dates: start: 201808
  14. ELIQUIS [Interacting]
     Active Substance: APIXABAN
     Indication: ATRIAL FIBRILLATION
     Dosage: 5 MILLIGRAM, TWO TIMES A DAY (1-0-1)
     Route: 065
     Dates: start: 201808
  15. PROCORALAN [Interacting]
     Active Substance: IVABRADINE
     Indication: CARDIAC DISORDER
     Dosage: 7.5 MILLIGRAM, ONCE A DAY (1-0-0)
     Route: 065
     Dates: start: 201808
  16. SPIRONOLACTONE. [Interacting]
     Active Substance: SPIRONOLACTONE
     Indication: CARDIAC DISORDER
     Dosage: 50 MILLIGRAM, ONCE A DAY (1-0-0)
     Route: 065
     Dates: start: 201808

REACTIONS (6)
  - Seizure [Recovered/Resolved]
  - Off label use [Unknown]
  - Movement disorder [Recovered/Resolved]
  - Eye movement disorder [Recovered/Resolved]
  - Oculogyric crisis [Recovered/Resolved]
  - Drug interaction [Unknown]

NARRATIVE: CASE EVENT DATE: 20200115
